FAERS Safety Report 7153218-1 (Version None)
Quarter: 2010Q4

REPORT INFORMATION
  Report Type: 
  Country: None (occurrence: None)
  Receive Date: 20101209
  Receipt Date: 20101209
  Transmission Date: 20110411
  Serious: Yes (Life-Threatening)
  Sender: FDA-Public Use
  Company Number: None

PATIENT
  Age: 46 Year
  Sex: Male
  Weight: 113.3993 kg

DRUGS (2)
  1. DICLOFENAC SODIUM [Suspect]
     Indication: PAIN
     Dosage: 1 TABLET TWICE A DAY
     Dates: start: 20101012, end: 20101101
  2. DICLOFENAC SODIUM [Suspect]
     Indication: PARAESTHESIA
     Dosage: 1 TABLET TWICE A DAY
     Dates: start: 20101012, end: 20101101

REACTIONS (1)
  - HYPERSENSITIVITY [None]
